FAERS Safety Report 23316236 (Version 2)
Quarter: 2025Q1

REPORT INFORMATION
  Report Type: Spontaneous
  Country: US (occurrence: US)
  Receive Date: 20231219
  Receipt Date: 20250331
  Transmission Date: 20250409
  Serious: No
  Sender: ROCHE
  Company Number: US-ROCHE-3342248

PATIENT
  Age: 7 Year
  Sex: Male

DRUGS (3)
  1. HEMLIBRA [Suspect]
     Active Substance: EMICIZUMAB-KXWH
     Indication: Factor VIII deficiency
     Route: 058
     Dates: start: 20230216
  2. HEMLIBRA [Suspect]
     Active Substance: EMICIZUMAB-KXWH
     Dosage: (STRENGTH: 60MG/0.4ML)
     Route: 058
     Dates: start: 202112
  3. HEMLIBRA [Suspect]
     Active Substance: EMICIZUMAB-KXWH
     Dosage: (STRENGTH: 150MG/ML)
     Route: 058

REACTIONS (3)
  - Haemorrhage [Recovered/Resolved]
  - Fall [Unknown]
  - Joint swelling [Unknown]

NARRATIVE: CASE EVENT DATE: 20230922
